FAERS Safety Report 6562286-7 (Version None)
Quarter: 2010Q1

REPORT INFORMATION
  Report Type: 
  Country: None (occurrence: None)
  Receive Date: 20100130
  Receipt Date: 20091102
  Transmission Date: 20100710
  Serious: No
  Sender: FDA-Public Use
  Company Number: US-ABBOTT-09P-163-0606777-00

PATIENT
  Sex: Male

DRUGS (3)
  1. HUMIRA [Suspect]
     Indication: ANKYLOSING SPONDYLITIS
     Route: 058
     Dates: start: 20070101
  2. HUMIRA [Suspect]
     Dosage: EXTRA DOSE
     Route: 058
     Dates: start: 20091030, end: 20091030
  3. EXFORGE [Concomitant]
     Indication: HYPERTENSION

REACTIONS (3)
  - ANKYLOSING SPONDYLITIS [None]
  - INCORRECT DOSE ADMINISTERED [None]
  - PAIN [None]
